FAERS Safety Report 23700930 (Version 2)
Quarter: 2024Q2

REPORT INFORMATION
  Report Type: Spontaneous
  Country: US (occurrence: US)
  Receive Date: 20240403
  Receipt Date: 20240410
  Transmission Date: 20240716
  Serious: Yes (Hospitalization)
  Sender: FDA-Public Use
  Company Number: US-AMGEN-USASP2024064855

PATIENT
  Age: 48 Year
  Sex: Female

DRUGS (2)
  1. BLINCYTO [Suspect]
     Active Substance: BLINATUMOMAB
     Indication: B precursor type acute leukaemia
     Dosage: UNK
     Route: 042
  2. BLINCYTO [Suspect]
     Active Substance: BLINATUMOMAB
     Dosage: 28 MICROGRAM, QD, 2ND CYCLE OF BLINCYTO, CONTINUOUS INTRAVENOUS INFUSION (CIV)
     Route: 042
     Dates: start: 20240325, end: 20240404

REACTIONS (2)
  - Seizure [Unknown]
  - Dyskinesia [Not Recovered/Not Resolved]

NARRATIVE: CASE EVENT DATE: 20240101
